FAERS Safety Report 10917611 (Version 1)
Quarter: 2015Q1

REPORT INFORMATION
  Report Type: Report from Study
  Country: US (occurrence: US)
  Receive Date: 20150316
  Receipt Date: 20150316
  Transmission Date: 20150721
  Serious: Yes (Other)
  Sender: FDA-Public Use
  Company Number: US-INTERMUNE, INC.-201409IM006966

PATIENT
  Age: 59 Year
  Sex: Male
  Weight: 107.8 kg

DRUGS (7)
  1. PIRFENIDONE [Suspect]
     Active Substance: PIRFENIDONE
     Indication: IDIOPATHIC PULMONARY FIBROSIS
     Dosage: 801 MG
     Dates: start: 20140827
  2. PIOGLITAZONE [Concomitant]
     Active Substance: PIOGLITAZONE
     Indication: DIABETES MELLITUS
     Dates: start: 2009
  3. RANEXA [Concomitant]
     Active Substance: RANOLAZINE
     Indication: ANGINA PECTORIS
     Dates: start: 2008
  4. NITRO-DUR [Concomitant]
     Active Substance: NITROGLYCERIN
     Indication: ANGINA PECTORIS
     Dates: start: 2006
  5. PIRFENIDONE [Suspect]
     Active Substance: PIRFENIDONE
     Dosage: 2403 MG
     Dates: start: 20140910, end: 20140913
  6. NITROSTAT [Concomitant]
     Active Substance: NITROGLYCERIN
     Indication: ANGINA PECTORIS
     Dates: start: 2012
  7. LISINOPRIL. [Concomitant]
     Active Substance: LISINOPRIL
     Indication: HYPERTENSION
     Dates: start: 2004

REACTIONS (2)
  - Dizziness [Recovered/Resolved]
  - Syncope [Recovered/Resolved]

NARRATIVE: CASE EVENT DATE: 20140913
